FAERS Safety Report 24818916 (Version 2)
Quarter: 2025Q1

REPORT INFORMATION
  Report Type: Spontaneous
  Country: US (occurrence: US)
  Receive Date: 20250108
  Receipt Date: 20250219
  Transmission Date: 20250408
  Serious: No
  Sender: ALEXION PHARMACEUTICALS
  Company Number: US-AstraZeneca-CH-00779548AP

PATIENT

DRUGS (1)
  1. BREZTRI [Suspect]
     Active Substance: BUDESONIDE\FORMOTEROL\GLYCOPYRROLATE
     Route: 065

REACTIONS (7)
  - Dysarthria [Unknown]
  - Tremor [Unknown]
  - Wrong technique in device usage process [Unknown]
  - Device issue [Unknown]
  - Device defective [Unknown]
  - Product dose omission issue [Unknown]
  - Incorrect dose administered [Unknown]
